FAERS Safety Report 14023227 (Version 4)
Quarter: 2022Q1

REPORT INFORMATION
  Report Type: Spontaneous
  Country: US (occurrence: US)
  Receive Date: 20170928
  Receipt Date: 20220128
  Transmission Date: 20220423
  Serious: No
  Sender: FDA-Public Use
  Company Number: US-SA-2016SA202625

PATIENT
  Sex: Female

DRUGS (12)
  1. AUBAGIO [Suspect]
     Active Substance: TERIFLUNOMIDE
     Indication: Multiple sclerosis
     Dosage: 14 MG, QD
     Route: 048
     Dates: start: 201605
  2. VELETRI [Suspect]
     Active Substance: EPOPROSTENOL
  3. UPTRAVI [Suspect]
     Active Substance: SELEXIPAG
     Dosage: UNK
  4. UPTRAVI [Suspect]
     Active Substance: SELEXIPAG
     Dosage: 400 UG, BID
  5. OPSUMIT [Concomitant]
     Active Substance: MACITENTAN
  6. DUPIXENT [Concomitant]
     Active Substance: DUPILUMAB
     Dosage: 25MG
  7. TOPIRAMATE [Concomitant]
     Active Substance: TOPIRAMATE
  8. SIMVASTATIN [Concomitant]
     Active Substance: SIMVASTATIN
  9. HYDROXYZINE HYDROCHLORIDE [Concomitant]
     Active Substance: HYDROXYZINE HYDROCHLORIDE
     Dosage: 50MG
  10. LISINOPRIL [Concomitant]
     Active Substance: LISINOPRIL
  11. SERTRALINE HYDROCHLORIDE [Concomitant]
     Active Substance: SERTRALINE HYDROCHLORIDE
     Dosage: 50MG
  12. MESALAMINE [Concomitant]
     Active Substance: MESALAMINE

REACTIONS (7)
  - Pain [Unknown]
  - Skin irritation [Unknown]
  - Eczema [Unknown]
  - Rash [Unknown]
  - Alopecia [Unknown]
  - Diarrhoea [Unknown]
  - Headache [Unknown]
